FAERS Safety Report 6183249-X (Version None)
Quarter: 2009Q2

REPORT INFORMATION
  Report Type: 
  Country: None (occurrence: None)
  Receive Date: 20090507
  Receipt Date: 20090427
  Transmission Date: 20091009
  Serious: Yes (Hospitalization)
  Sender: FDA-Public Use
  Company Number: DE-AMGEN-UK344640

PATIENT
  Sex: Female

DRUGS (5)
  1. ARANESP [Suspect]
     Indication: ANAEMIA OF MALIGNANT DISEASE
     Route: 058
     Dates: start: 20061005, end: 20061005
  2. NEULASTA [Suspect]
     Route: 058
     Dates: start: 20060825, end: 20060915
  3. DOCETAXEL [Suspect]
     Route: 042
     Dates: start: 20060824, end: 20061005
  4. DOXORUBICIN HYDROCHLORIDE [Suspect]
     Route: 042
     Dates: start: 20060824, end: 20061005
  5. CYCLOPHOSPHAMIDE [Suspect]
     Route: 042
     Dates: start: 20060824, end: 20061005

REACTIONS (2)
  - CARDIOVASCULAR DISORDER [None]
  - MENTAL DISORDER [None]
